FAERS Safety Report 7912574-4 (Version None)
Quarter: 2011Q4

REPORT INFORMATION
  Report Type: 
  Country: None (occurrence: None)
  Receive Date: 20111114
  Receipt Date: 20111102
  Transmission Date: 20120403
  Serious: No
  Sender: FDA-Public Use
  Company Number: JP-SANOFI-AVENTIS-2011SA070634

PATIENT
  Age: 87 Year
  Sex: Female
  Weight: 41.3 kg

DRUGS (5)
  1. PROTECADIN [Suspect]
     Indication: GASTROINTESTINAL DISORDER
     Route: 065
     Dates: start: 20110908, end: 20110915
  2. PRAVASTATIN SODIUM [Concomitant]
  3. PLAVIX [Suspect]
     Indication: CEREBRAL INFARCTION
     Route: 065
     Dates: start: 20110908, end: 20110915
  4. NICHISTATE [Concomitant]
     Indication: CEREBRAL INFARCTION
  5. MEIACT [Concomitant]
     Indication: URINARY TRACT INFECTION
     Dates: start: 20110912, end: 20110915

REACTIONS (1)
  - BLOOD CREATINE PHOSPHOKINASE INCREASED [None]
